FAERS Safety Report 22005923 (Version 1)
Quarter: 2023Q1

REPORT INFORMATION
  Report Type: Spontaneous
  Country: US (occurrence: None)
  Receive Date: 20230216
  Receipt Date: 20230216
  Transmission Date: 20230417
  Serious: Yes (Other)
  Sender: FDA-Public Use
  Company Number: None

PATIENT
  Age: 74 Year
  Sex: Male
  Weight: 115.2 kg

DRUGS (1)
  1. PROPOFOL [Suspect]
     Active Substance: PROPOFOL
     Indication: Sedative therapy
     Dosage: OTHER STRENGTH : UNKNOWN;?OTHER QUANTITY : 1 INHALATION(S);?OTHER FREQUENCY : ONCE;?OTHER ROUTE : AN
     Route: 050
     Dates: start: 20230130, end: 20230130

REACTIONS (5)
  - Blood pressure fluctuation [None]
  - Fall [None]
  - Neck injury [None]
  - Syncope [None]
  - Orthostatic hypotension [None]

NARRATIVE: CASE EVENT DATE: 20230130
